FAERS Safety Report 5531276-5 (Version None)
Quarter: 2007Q4

REPORT INFORMATION
  Report Type: 
  Country: None (occurrence: None)
  Receive Date: 20071127
  Receipt Date: 20071115
  Transmission Date: 20080405
  Serious: Yes (Other)
  Sender: FDA-Public Use
  Company Number: 2007334310

PATIENT
  Sex: Male

DRUGS (1)
  1. NON-DROWSY SUDAFED CHILDREN'S SYRUP (PSEUDOEPHEDRINE) [Suspect]
     Indication: COUGH
     Dosage: ORAL
     Route: 048

REACTIONS (1)
  - HYPERSENSITIVITY [None]
